FAERS Safety Report 4548265-X (Version None)
Quarter: 2004Q4

REPORT INFORMATION
  Report Type: 
  Country: None (occurrence: None)
  Receive Date: 20041227
  Receipt Date: 20041008
  Transmission Date: 20050328
  Serious: No
  Sender: FDA-Public Use
  Company Number: 04P-163-0276708-00

PATIENT
  Age: 56 Year
  Sex: Male
  Weight: 86.1834 kg

DRUGS (5)
  1. HUMIRA [Suspect]
     Indication: RHEUMATOID ARTHRITIS
     Dosage: 40 MG, 1 IN 2  WK, SUBCUTANEOUS
     Route: 058
     Dates: start: 20040701
  2. LEFLUNOMIDE [Concomitant]
  3. PREDNISONE [Concomitant]
  4. CETIRIZINE HCL [Concomitant]
  5. MULTIVITAMIN [Concomitant]

REACTIONS (1)
  - INJECTION SITE HAEMORRHAGE [None]
